FAERS Safety Report 21441778 (Version 1)
Quarter: 2022Q4

REPORT INFORMATION
  Report Type: Spontaneous
  Country: CN (occurrence: CN)
  Receive Date: 20221011
  Receipt Date: 20221011
  Transmission Date: 20230112
  Serious: Yes (Other)
  Sender: FDA-Public Use
  Company Number: CN-MYLANLABS-2022M1112579

PATIENT
  Age: 51 Year
  Sex: Female
  Weight: 60 kg

DRUGS (2)
  1. XALATAN [Suspect]
     Active Substance: LATANOPROST
     Indication: Glaucoma
     Dosage: 1 DROP, QD
     Dates: start: 20211209, end: 20220825
  2. BLOOD, BOVINE [Concomitant]
     Active Substance: BLOOD, BOVINE
     Indication: Glaucoma
     Dosage: 1 DROP, QD
     Dates: start: 20211209, end: 20220825

REACTIONS (1)
  - Corneal exfoliation [Recovering/Resolving]

NARRATIVE: CASE EVENT DATE: 20220825
